FAERS Safety Report 7450514-5 (Version None)
Quarter: 2011Q2

REPORT INFORMATION
  Report Type: 
  Country: None (occurrence: None)
  Receive Date: 20110502
  Receipt Date: 20110421
  Transmission Date: 20111010
  Serious: Yes (Other)
  Sender: FDA-Public Use
  Company Number: PHHY2011US35923

PATIENT
  Sex: Female

DRUGS (3)
  1. SYNTHROID [Concomitant]
  2. DIOVAN HCT [Suspect]
     Dosage: 1 DF, QD (320/25 MG)
  3. RADIATION THERAPY [Suspect]

REACTIONS (2)
  - BLOOD PRESSURE DECREASED [None]
  - BRAIN NEOPLASM [None]
